FAERS Safety Report 5318962-7 (Version None)
Quarter: 2007Q2

REPORT INFORMATION
  Report Type: 
  Country: None (occurrence: None)
  Receive Date: 20070508
  Receipt Date: 20070426
  Transmission Date: 20071010
  Serious: Yes (Congenital Anomaly, Other)
  Sender: FDA-Public Use
  Company Number: FR-AVENTIS-200610565FR

PATIENT
  Age: 1 Day
  Sex: Male
  Weight: 1.99 kg

DRUGS (6)
  1. ARAVA [Suspect]
     Route: 064
     Dates: start: 20040801, end: 20051001
  2. CORTANCYL [Suspect]
     Route: 064
  3. DOLIPRANE [Suspect]
     Route: 064
  4. OMEPRAZOLE [Suspect]
     Route: 064
  5. DEDROGYL [Suspect]
     Route: 064
  6. CACIT D3 [Suspect]
     Route: 064

REACTIONS (5)
  - DRUG EXPOSURE DURING PREGNANCY [None]
  - MEDICATION ERROR [None]
  - PULMONARY VALVE STENOSIS [None]
  - TRICUSPID VALVE INCOMPETENCE [None]
  - VENTRICULAR HYPOPLASIA [None]
